FAERS Safety Report 6417900-3 (Version None)
Quarter: 2009Q4

REPORT INFORMATION
  Report Type: 
  Country: None (occurrence: None)
  Receive Date: 20091028
  Receipt Date: 20091021
  Transmission Date: 20100525
  Serious: Yes (Other)
  Sender: FDA-Public Use
  Company Number: B0362059F

PATIENT
  Sex: Female
  Weight: 132.7 kg

DRUGS (2)
  1. LAPATINIB [Suspect]
     Dosage: 1500MG PER DAY
     Route: 048
     Dates: start: 20041028, end: 20070501
  2. LETROZOLE [Suspect]
     Dosage: 2.5MG PER DAY
     Route: 048
     Dates: start: 20041028

REACTIONS (1)
  - EJECTION FRACTION DECREASED [None]
